FAERS Safety Report 17722671 (Version 2)
Quarter: 2020Q2

REPORT INFORMATION
  Report Type: Spontaneous
  Country: US (occurrence: US)
  Receive Date: 20200429
  Receipt Date: 20200602
  Transmission Date: 20200714
  Serious: No
  Sender: FDA-Public Use
  Company Number: US-PFIZER INC-2020171945

PATIENT
  Age: 46 Year
  Sex: Female

DRUGS (2)
  1. IBRANCE [Suspect]
     Active Substance: PALBOCICLIB
     Dosage: 125 MG
     Dates: start: 20191111
  2. IBRANCE [Suspect]
     Active Substance: PALBOCICLIB
     Dosage: 125 MG
     Dates: start: 20200601

REACTIONS (5)
  - Muscle spasms [Unknown]
  - Blood glucose decreased [Unknown]
  - Fatigue [Unknown]
  - Myalgia [Unknown]
  - Back pain [Unknown]
